FAERS Safety Report 14803069 (Version 1)
Quarter: 2018Q2

REPORT INFORMATION
  Report Type: Spontaneous
  Country: US (occurrence: US)
  Receive Date: 20180424
  Receipt Date: 20180424
  Transmission Date: 20180711
  Serious: Yes (Hospitalization)
  Sender: FDA-Public Use
  Company Number: PHHY2018US066989

PATIENT
  Age: 78 Year
  Sex: Female

DRUGS (1)
  1. NILOTINIB [Suspect]
     Active Substance: NILOTINIB
     Indication: CHRONIC MYELOID LEUKAEMIA
     Dosage: UNK
     Route: 065

REACTIONS (8)
  - Nephrotic syndrome [Unknown]
  - Oedema peripheral [Unknown]
  - Fluid overload [Unknown]
  - Proteinuria [Unknown]
  - Weight increased [Unknown]
  - Abdominal distension [Unknown]
  - Glomerulonephritis minimal lesion [Unknown]
  - Dyspnoea [Unknown]
